FAERS Safety Report 9676440 (Version 1)
Quarter: 2013Q4

REPORT INFORMATION
  Report Type: Spontaneous
  Country: US (occurrence: US)
  Receive Date: 20131107
  Receipt Date: 20131107
  Transmission Date: 20140711
  Serious: Yes (Other)
  Sender: FDA-Public Use
  Company Number: CHPA2013US016587

PATIENT
  Age: 75 Year
  Sex: Female

DRUGS (6)
  1. EXCEDRIN UNKNOWN [Suspect]
     Indication: HEADACHE
     Dosage: 2 DF, UNK
     Route: 048
  2. EXCEDRIN TENSION HEADACHE [Suspect]
     Indication: HEADACHE
     Dosage: 2 DF, UNK
     Route: 048
  3. BENEFIBER [Suspect]
     Indication: CONSTIPATION
     Dosage: UNK, UNK
     Route: 048
  4. BENEFIBER [Suspect]
     Indication: OFF LABEL USE
  5. MYOFLEX [Concomitant]
     Dosage: UNK, UNK
     Route: 061
  6. TROLAMINE SALICYLATE [Concomitant]
     Dosage: UNK, UNK
     Route: 061

REACTIONS (8)
  - Atrial fibrillation [Not Recovered/Not Resolved]
  - Abdominal discomfort [Recovered/Resolved]
  - Constipation [Not Recovered/Not Resolved]
  - Abdominal distension [Recovered/Resolved]
  - Flatulence [Recovered/Resolved]
  - Inappropriate schedule of drug administration [Unknown]
  - Drug ineffective for unapproved indication [Unknown]
  - Therapeutic response decreased [Unknown]
